FAERS Safety Report 6474627-X (Version None)
Quarter: 2009Q4

REPORT INFORMATION
  Report Type: 
  Country: None (occurrence: None)
  Receive Date: 20091201
  Receipt Date: 20091117
  Transmission Date: 20100525
  Serious: Yes (Hospitalization)
  Sender: FDA-Public Use
  Company Number: 2009-4718

PATIENT
  Sex: Female

DRUGS (1)
  1. DYSPORT [Suspect]
     Indication: DYSPHONIA
     Dosage: SINGLE CYCLE

REACTIONS (3)
  - DYSPHAGIA [None]
  - FATIGUE [None]
  - MOBILITY DECREASED [None]
